FAERS Safety Report 8310472 (Version 2)
Quarter: 2013Q4

REPORT INFORMATION
  Report Type: Spontaneous
  Country: US (occurrence: US)
  Receive Date: 20111223
  Receipt Date: 20131113
  Transmission Date: 20140711
  Serious: Yes (Other)
  Sender: FDA-Public Use
  Company Number: US-ROCHE-791758

PATIENT
  Age: 17 Year
  Sex: Female
  Weight: 99.88 kg

DRUGS (4)
  1. ACCUTANE [Suspect]
     Indication: ACNE
     Route: 048
     Dates: start: 199609, end: 199704
  2. ACCUTANE [Suspect]
     Route: 048
  3. ACCUTANE [Suspect]
     Route: 048
  4. MOTRIN [Concomitant]
     Dosage: FREQUENCY: AS NECESSARY
     Route: 065

REACTIONS (5)
  - Crohn^s disease [Unknown]
  - Inflammatory bowel disease [Unknown]
  - Anxiety [Unknown]
  - Blood triglycerides increased [Recovering/Resolving]
  - Irritable bowel syndrome [Unknown]
